FAERS Safety Report 14931398 (Version 1)
Quarter: 2018Q2

REPORT INFORMATION
  Report Type: Spontaneous
  Country: US (occurrence: US)
  Receive Date: 20180524
  Receipt Date: 20180524
  Transmission Date: 20180711
  Serious: No
  Sender: FDA-Public Use
  Company Number: US-BRISTOL-MYERS SQUIBB COMPANY-BMS-2018-044779

PATIENT
  Sex: Male
  Weight: 62.14 kg

DRUGS (1)
  1. KENALOG-40 [Suspect]
     Active Substance: TRIAMCINOLONE ACETONIDE
     Indication: TENOSYNOVITIS
     Dosage: 10 MG, UNK
     Route: 050
     Dates: start: 20180504, end: 20180504

REACTIONS (9)
  - Insomnia [Unknown]
  - Feeling hot [Unknown]
  - Hyperhidrosis [Unknown]
  - Weight decreased [Unknown]
  - Adverse event [Unknown]
  - Nasopharyngitis [Unknown]
  - Palpitations [Unknown]
  - Anxiety [Unknown]
  - Panic reaction [Unknown]

NARRATIVE: CASE EVENT DATE: 20180505
